FAERS Safety Report 14352609 (Version 3)
Quarter: 2020Q2

REPORT INFORMATION
  Report Type: Report from Study
  Country: US (occurrence: US)
  Receive Date: 20180104
  Receipt Date: 20200423
  Transmission Date: 20200713
  Serious: Yes (Other)
  Sender: FDA-Public Use
  Company Number: US-JAZZ-2017-US-006804

PATIENT
  Age: 29 Year
  Sex: Female

DRUGS (13)
  1. XYREM [Suspect]
     Active Substance: SODIUM OXYBATE
     Indication: NARCOLEPSY
     Dosage: 4.5 G, BID
     Route: 048
     Dates: start: 201411, end: 2015
  2. XYREM [Suspect]
     Active Substance: SODIUM OXYBATE
     Dosage: 3.5 G, BID
     Route: 048
     Dates: start: 201704, end: 2017
  3. ACETYLSALICYLIC ACID [Concomitant]
     Active Substance: ASPIRIN
  4. IBUPROFEN. [Concomitant]
     Active Substance: IBUPROFEN
  5. XYREM [Suspect]
     Active Substance: SODIUM OXYBATE
     Indication: CATAPLEXY
     Dosage: DOSE ADJUSTMENT
     Route: 048
     Dates: start: 201604, end: 201704
  6. TYLENOL EXTRA STRENGTH [Concomitant]
     Active Substance: ACETAMINOPHEN
  7. MODAFINIL. [Concomitant]
     Active Substance: MODAFINIL
  8. TYLENOL WITH CODEINE [Concomitant]
     Active Substance: ACETAMINOPHEN\CODEINE PHOSPHATE
  9. LABETALOL HCL [Concomitant]
     Active Substance: LABETALOL HYDROCHLORIDE
  10. METHYLPHENIDATE. [Concomitant]
     Active Substance: METHYLPHENIDATE
  11. TRAZODONE [Concomitant]
     Active Substance: TRAZODONE HYDROCHLORIDE
  12. IMIPRAMINE HCL [Concomitant]
     Active Substance: IMIPRAMINE HYDROCHLORIDE
  13. PROTRIPTYLINE HCL [Concomitant]
     Active Substance: PROTRIPTYLINE HYDROCHLORIDE

REACTIONS (5)
  - Sleep-related eating disorder [Unknown]
  - Weight increased [Recovering/Resolving]
  - Balance disorder [Unknown]
  - Sleep apnoea syndrome [Recovering/Resolving]
  - Somnambulism [Unknown]

NARRATIVE: CASE EVENT DATE: 201607
